FAERS Safety Report 20975618 (Version 1)
Quarter: 2022Q2

REPORT INFORMATION
  Report Type: Spontaneous
  Country: NL (occurrence: None)
  Receive Date: 20220617
  Receipt Date: 20220617
  Transmission Date: 20220720
  Serious: Yes (Death)
  Sender: FDA-Public Use
  Company Number: None

PATIENT
  Age: 62 Year
  Sex: Female
  Weight: 60 kg

DRUGS (4)
  1. CAPECITABINE [Suspect]
     Active Substance: CAPECITABINE
     Indication: Breast cancer metastatic
     Dosage: 2X PER DAG 4 STUK
     Route: 048
     Dates: start: 20220401, end: 20220417
  2. LEVOTHYROXINE [Concomitant]
     Active Substance: LEVOTHYROXINE
     Dosage: TABLET, 50 MICROGRAM
  3. METHIMAZOLE [Concomitant]
     Active Substance: METHIMAZOLE
     Dosage: TABLET, 10 MG (MILLIGRAM)
  4. PANTOPRAZOLE [Concomitant]
     Active Substance: PANTOPRAZOLE
     Dosage: MAAGSAPRESISTENTE TABLET, 40 MG (MILLIGRAM)

REACTIONS (2)
  - Diarrhoea [Fatal]
  - Mucosal inflammation [Fatal]

NARRATIVE: CASE EVENT DATE: 20220417
